FAERS Safety Report 6240756-9 (Version None)
Quarter: 2009Q2

REPORT INFORMATION
  Report Type: 
  Country: None (occurrence: None)
  Receive Date: 20090623
  Receipt Date: 20090610
  Transmission Date: 20091009
  Serious: Yes (Other)
  Sender: FDA-Public Use
  Company Number: US-PFIZER INC-2009227581

PATIENT
  Sex: Male

DRUGS (8)
  1. CHANTIX [Suspect]
     Indication: SMOKING CESSATION THERAPY
     Dosage: UNKNOWN
     Dates: start: 20090101
  2. NORVASC [Concomitant]
  3. FOLIC ACID [Concomitant]
  4. THIAMINE [Concomitant]
  5. CENTRUM [Concomitant]
  6. MAGNESIUM [Concomitant]
  7. BEE POLLEN [Concomitant]
  8. VITAMIN B-12 [Concomitant]

REACTIONS (4)
  - DRUG INEFFECTIVE [None]
  - INTENTIONAL DRUG MISUSE [None]
  - MUSCLE ATROPHY [None]
  - WEIGHT DECREASED [None]
